FAERS Safety Report 6000994-7 (Version None)
Quarter: 2008Q4

REPORT INFORMATION
  Report Type: 
  Country: None (occurrence: None)
  Receive Date: 20081215
  Receipt Date: 20080110
  Transmission Date: 20090506
  Serious: No
  Sender: FDA-Public Use
  Company Number: US-BRISTOL-MYERS SQUIBB COMPANY-14036651

PATIENT
  Age: 61 Year
  Sex: Female
  Weight: 61 kg

DRUGS (2)
  1. CHOLESTYRAMINE [Suspect]
     Dosage: 1 DOSAGE FORM = 1 DOSE
     Dates: start: 20070101
  2. LEFLUNOMIDE [Suspect]
     Indication: RHEUMATOID ARTHRITIS
     Dosage: 10 MG PO FROM FEB-2007 TO JUNE-2007.
     Route: 048
     Dates: start: 20070601

REACTIONS (2)
  - DIZZINESS [None]
  - NAUSEA [None]
